FAERS Safety Report 19010524 (Version 1)
Quarter: 2021Q1

REPORT INFORMATION
  Report Type: Spontaneous
  Country: AT (occurrence: AT)
  Receive Date: 20210315
  Receipt Date: 20210315
  Transmission Date: 20210420
  Serious: Yes (Other)
  Sender: FDA-Public Use
  Company Number: AT-PFIZER INC-2021221395

PATIENT
  Age: 60 Year
  Sex: Male

DRUGS (3)
  1. ALECENSA [Suspect]
     Active Substance: ALECTINIB HYDROCHLORIDE
     Indication: NON-SMALL CELL LUNG CANCER
  2. LORLATINIB [Suspect]
     Active Substance: LORLATINIB
  3. BRIGATINIB [Suspect]
     Active Substance: BRIGATINIB

REACTIONS (3)
  - Renal failure [Unknown]
  - Pneumonitis [Unknown]
  - Blood creatinine increased [Unknown]
